FAERS Safety Report 7718171-8 (Version None)
Quarter: 2011Q3

REPORT INFORMATION
  Report Type: 
  Country: None (occurrence: None)
  Receive Date: 20110830
  Receipt Date: 20110818
  Transmission Date: 20111222
  Serious: Yes (Death, Other)
  Sender: FDA-Public Use
  Company Number: JP-PFIZER INC-2011182680

PATIENT
  Age: 81 Year

DRUGS (6)
  1. CISPLATIN [Suspect]
  2. ADRIAMYCIN PFS [Suspect]
  3. METHOTREXATE SODIUM [Suspect]
  4. VINCRISTINE [Suspect]
  5. CYCLOPHOSPHAMIDE [Suspect]
  6. BLEOMYCIN [Suspect]

REACTIONS (1)
  - PULMONARY FIBROSIS [None]
